FAERS Safety Report 7397348-8 (Version None)
Quarter: 2011Q2

REPORT INFORMATION
  Report Type: 
  Country: None (occurrence: None)
  Receive Date: 20110406
  Receipt Date: 20110330
  Transmission Date: 20111010
  Serious: Yes (Death, Other)
  Sender: FDA-Public Use
  Company Number: GB-PFIZER INC-2011071620

PATIENT
  Age: 36 Year
  Sex: Male

DRUGS (20)
  1. LANSOPRAZOLE [Concomitant]
  2. FOLIC ACID [Concomitant]
  3. FAMOTIDINE [Concomitant]
  4. METOCLOPRAMIDE [Concomitant]
  5. QUETIAPINE [Interacting]
  6. FUROSEMIDE [Concomitant]
  7. ENALAPRIL [Concomitant]
  8. TRAMADOL [Interacting]
     Dosage: 50 MG, 1 TO 2 TABS AS NEEDED
  9. TRAZODONE [Interacting]
  10. METOPROLOL [Concomitant]
  11. ACETAMINOPHEN [Concomitant]
  12. DOCUSATE SODIUM [Concomitant]
  13. BENZONATATE [Concomitant]
  14. VENLAFAXINE HCL [Suspect]
     Dosage: 300 MG, 1X/DAY
  15. CHLORDIAZEPOXIDE [Concomitant]
  16. RANITIDINE [Concomitant]
  17. LITHIUM [Concomitant]
  18. LORAZEPAM [Concomitant]
  19. VITAMIN B [Concomitant]
  20. TEMAZEPAM [Concomitant]

REACTIONS (2)
  - CONVULSION [None]
  - DRUG INTERACTION [None]
